FAERS Safety Report 15842080 (Version 4)
Quarter: 2019Q4

REPORT INFORMATION
  Report Type: Spontaneous
  Country: PT (occurrence: PT)
  Receive Date: 20190118
  Receipt Date: 20191210
  Transmission Date: 20200122
  Serious: Yes (Hospitalization, Other)
  Sender: FDA-Public Use
  Company Number: PT-MYLANLABS-2019M1003991

PATIENT
  Age: 55 Year
  Sex: Male

DRUGS (3)
  1. LINAGLIPTIN [Suspect]
     Active Substance: LINAGLIPTIN
     Indication: TYPE 2 DIABETES MELLITUS
     Dosage: UNK
     Route: 065
  2. TRAJENTA [Suspect]
     Active Substance: LINAGLIPTIN
     Indication: TYPE 2 DIABETES MELLITUS
     Dosage: UNK
     Route: 065
  3. METFORMIN [Suspect]
     Active Substance: METFORMIN HYDROCHLORIDE
     Indication: TYPE 2 DIABETES MELLITUS
     Dosage: 2 GRAM, QD (2 GRAM PER DAY)
     Route: 048

REACTIONS (17)
  - Asthenia [Recovering/Resolving]
  - Condition aggravated [Not Recovered/Not Resolved]
  - Poikilocytosis [Recovering/Resolving]
  - Vitamin B12 deficiency [Recovering/Resolving]
  - Fatigue [Recovering/Resolving]
  - Leukopenia [Not Recovered/Not Resolved]
  - Contraindicated product administered [Unknown]
  - Blood lactate dehydrogenase increased [Recovering/Resolving]
  - Pallor [Unknown]
  - Varicose vein [Recovering/Resolving]
  - Blood bilirubin increased [Recovering/Resolving]
  - Thrombocytopenia [Recovering/Resolving]
  - Anaemia [Recovering/Resolving]
  - Thrombotic microangiopathy [Recovering/Resolving]
  - Jaundice [Recovering/Resolving]
  - Weight decreased [Recovering/Resolving]
  - Varices oesophageal [Unknown]
